FAERS Safety Report 9347973 (Version 1)
Quarter: 2013Q2

REPORT INFORMATION
  Report Type: Spontaneous
  Country: CN (occurrence: CN)
  Receive Date: 20130614
  Receipt Date: 20130614
  Transmission Date: 20140414
  Serious: Yes (Other)
  Sender: FDA-Public Use
  Company Number: CN-JNJFOC-20130606093

PATIENT
  Sex: Male

DRUGS (2)
  1. TYLENOL EXTENDED RELIEF [Suspect]
     Route: 048
  2. TYLENOL EXTENDED RELIEF [Suspect]
     Indication: PRODUCT USED FOR UNKNOWN INDICATION
     Route: 048
     Dates: start: 20121121, end: 20121127

REACTIONS (1)
  - Hepatocellular injury [Recovering/Resolving]
